FAERS Safety Report 7531926-8 (Version None)
Quarter: 2011Q2

REPORT INFORMATION
  Report Type: 
  Country: None (occurrence: None)
  Receive Date: 20110608
  Receipt Date: 20110606
  Transmission Date: 20111010
  Serious: No
  Sender: FDA-Public Use
  Company Number: US-TEVA-281233USA

PATIENT
  Sex: Female
  Weight: 63.56 kg

DRUGS (3)
  1. PREDNISONE [Suspect]
  2. PROAIR HFA [Suspect]
     Route: 055
     Dates: start: 20110328, end: 20110328
  3. DIPHENHYDRAMINE HYDROCHLORIDE [Suspect]

REACTIONS (3)
  - TOXICITY TO VARIOUS AGENTS [None]
  - DELUSION [None]
  - PSYCHOTIC DISORDER [None]
